FAERS Safety Report 10159107 (Version 3)
Quarter: 2014Q3

REPORT INFORMATION
  Report Type: Report from Study
  Country: DE (occurrence: DE)
  Receive Date: 20140508
  Receipt Date: 20140728
  Transmission Date: 20150326
  Serious: Yes (Hospitalization)
  Sender: FDA-Public Use
  Company Number: DE-BRISTOL-MYERS SQUIBB COMPANY-20717856

PATIENT
  Age: 74 Year
  Sex: Male
  Weight: 80.3 kg

DRUGS (26)
  1. PALLADON [Concomitant]
     Active Substance: HYDROMORPHONE
  2. DEXAMETHASONE. [Concomitant]
     Active Substance: DEXAMETHASONE
     Indication: PREMEDICATION
     Dates: start: 20140326, end: 20140416
  3. CALCIUM FOLINATE [Concomitant]
     Active Substance: LEUCOVORIN CALCIUM
     Indication: COLORECTAL CANCER METASTATIC
     Route: 042
     Dates: start: 20140326, end: 20140416
  4. LYRICA [Concomitant]
     Active Substance: PREGABALIN
  5. ZOPICLONE [Concomitant]
     Active Substance: ZOPICLONE
  6. FENTANYL. [Concomitant]
     Active Substance: FENTANYL
  7. GRANISETRON [Concomitant]
     Active Substance: GRANISETRON
     Indication: PREMEDICATION
     Dates: start: 20140326, end: 20140416
  8. IRINOTECAN [Concomitant]
     Active Substance: IRINOTECAN
     Indication: COLORECTAL CANCER METASTATIC
     Route: 042
     Dates: start: 20140326, end: 20140416
  9. ACETYLSALICYLIC ACID [Concomitant]
     Active Substance: ASPIRIN
  10. METOPROLOL [Concomitant]
     Active Substance: METOPROLOL
  11. TAVOR [Concomitant]
     Active Substance: LORAZEPAM
  12. ACTRAPID [Concomitant]
     Active Substance: INSULIN HUMAN
  13. CITALOPRAM [Concomitant]
     Active Substance: CITALOPRAM HYDROBROMIDE
  14. PROTAPHANE [Concomitant]
     Active Substance: INSULIN HUMAN
  15. ERBITUX [Suspect]
     Active Substance: CETUXIMAB
     Indication: COLORECTAL CANCER METASTATIC
     Dosage: 450MG: 16APR14
     Route: 042
     Dates: start: 20140326, end: 20140423
  16. ENALAPRIL [Concomitant]
     Active Substance: ENALAPRIL
  17. SIMVASTATIN. [Concomitant]
     Active Substance: SIMVASTATIN
  18. AMLODIPINE [Concomitant]
     Active Substance: AMLODIPINE BESYLATE
  19. ATROPINE [Concomitant]
     Active Substance: ATROPINE
  20. PANTOPRAZOLE [Concomitant]
     Active Substance: PANTOPRAZOLE SODIUM
  21. CLEXANE [Concomitant]
     Active Substance: ENOXAPARIN SODIUM
  22. 5-FLUOROURACIL [Concomitant]
     Active Substance: FLUOROURACIL
     Indication: COLORECTAL CANCER METASTATIC
     Route: 042
     Dates: start: 20140326, end: 20140416
  23. CANDESARTAN [Concomitant]
     Active Substance: CANDESARTAN
  24. ORAMORPH SR SUSTAINED RELEASE [Concomitant]
     Active Substance: MORPHINE SULFATE
  25. BUSCOPAN PLUS [Concomitant]
     Active Substance: ACETAMINOPHEN\BUTYLSCOPOLAMINE BROMIDE
  26. KALINOR-RETARD P [Concomitant]

REACTIONS (3)
  - Pneumonia [Recovered/Resolved]
  - Haematuria [Recovered/Resolved]
  - General physical health deterioration [Not Recovered/Not Resolved]

NARRATIVE: CASE EVENT DATE: 20140418
